FAERS Safety Report 9173834 (Version 2)
Quarter: 2013Q2

REPORT INFORMATION
  Report Type: Spontaneous
  Country: US (occurrence: US)
  Receive Date: 20130320
  Receipt Date: 20130619
  Transmission Date: 20140414
  Serious: Yes (Hospitalization)
  Sender: FDA-Public Use
  Company Number: US-B.I. PHARMACEUTICALS,INC./RIDGEFIELD-2013-BI-06952BP

PATIENT
  Age: 77 Year
  Sex: Female
  Weight: 64 kg

DRUGS (12)
  1. PRADAXA [Suspect]
     Indication: ATRIAL FIBRILLATION
     Dosage: 300 MG
     Route: 048
     Dates: start: 2011
  2. CO Q10/ COENZYME Q [Concomitant]
     Dosage: 100 MG
     Route: 048
  3. DIOVAN [Concomitant]
     Indication: HYPERTENSION
     Dosage: 80 MG
     Route: 048
  4. CARDIZEM [Concomitant]
     Indication: ATRIAL FIBRILLATION
     Dosage: 300 MG
     Route: 048
  5. LIPITOR [Concomitant]
     Indication: BLOOD CHOLESTEROL INCREASED
     Dosage: 10 MG
     Route: 048
  6. VITAMIN D [Concomitant]
     Indication: VITAMIN D DECREASED
     Dosage: 2000 MCG
     Route: 048
  7. METOPROLOL [Concomitant]
     Indication: HYPERTENSION
     Dosage: 200 MG
     Route: 048
  8. FLONASE [Concomitant]
     Dosage: 1 AQUIRT PER NOSTRIL
  9. LEVAQUIN [Concomitant]
     Dosage: 500 MG
     Route: 048
  10. ROBITUSSIN [Concomitant]
     Indication: COUGH
     Dosage: DAILY DOSE: 5-10ML
     Route: 048
  11. DILTIAZEM CD [Concomitant]
     Dosage: 300 MG
     Route: 048
  12. TOPROL XL [Concomitant]
     Dosage: 100 MG
     Route: 048

REACTIONS (4)
  - Blood sodium abnormal [Recovered/Resolved]
  - Pneumonia [Recovered/Resolved]
  - Pyrexia [Recovered/Resolved]
  - Oropharyngeal pain [Recovered/Resolved]
